FAERS Safety Report 13367530 (Version 1)
Quarter: 2017Q1

REPORT INFORMATION
  Report Type: Report from Study
  Country: JP (occurrence: JP)
  Receive Date: 20170324
  Receipt Date: 20170324
  Transmission Date: 20170429
  Serious: Yes (Other)
  Sender: FDA-Public Use
  Company Number: JP-PFIZER INC-2017127419

PATIENT

DRUGS (8)
  1. AMLODIPINE BESILATE [Suspect]
     Active Substance: AMLODIPINE BESYLATE
     Dosage: 2.5 MG, UNK
  2. LANSOPRAZOLE. [Interacting]
     Active Substance: LANSOPRAZOLE
     Indication: NON-SMALL CELL LUNG CANCER
     Dosage: 15 MG, DAILY
  3. PEMETREXED [Interacting]
     Active Substance: PEMETREXED
     Indication: NON-SMALL CELL LUNG CANCER
     Dosage: 500 MG/M2
     Route: 042
  4. CARBOPLATIN. [Interacting]
     Active Substance: CARBOPLATIN
     Indication: NON-SMALL CELL LUNG CANCER
     Dosage: AREA UNDER THE CONCENTRATION-TIME CURVE OF 5 OR 6 MG?MIN/ML
     Route: 042
  5. MAGNESIUM OXIDE. [Concomitant]
     Active Substance: MAGNESIUM OXIDE
     Dosage: 330 MG, UNK
  6. PREGABALIN. [Concomitant]
     Active Substance: PREGABALIN
     Dosage: 25 MG, UNK
  7. BEVACIZUMAB [Concomitant]
     Active Substance: BEVACIZUMAB
     Indication: NON-SMALL CELL LUNG CANCER
     Dosage: 15 MG/KG, UNK
     Route: 042
  8. BETAMETHASONE. [Concomitant]
     Active Substance: BETAMETHASONE
     Dosage: 0.5 MG, UNK

REACTIONS (2)
  - Haematotoxicity [Unknown]
  - Drug interaction [Unknown]
